FAERS Safety Report 23643579 (Version 1)
Quarter: 2024Q1

REPORT INFORMATION
  Report Type: Spontaneous
  Country: US (occurrence: US)
  Receive Date: 20240318
  Receipt Date: 20240318
  Transmission Date: 20240410
  Serious: Yes (Hospitalization)
  Sender: FDA-Public Use
  Company Number: US-MYLANLABS-2024M1024134

PATIENT
  Age: 51 Year
  Sex: Male

DRUGS (1)
  1. ETOMIDATE [Suspect]
     Active Substance: ETOMIDATE
     Indication: Cushing^s syndrome
     Dosage: 3 MILLIGRAM, QH, DRIP
     Route: 065

REACTIONS (3)
  - Cortisol increased [Unknown]
  - Rebound effect [Unknown]
  - Off label use [Unknown]
